FAERS Safety Report 9042716 (Version 2)
Quarter: 2013Q3

REPORT INFORMATION
  Report Type: Spontaneous
  Country: DE (occurrence: DE)
  Receive Date: 20130129
  Receipt Date: 20130702
  Transmission Date: 20140515
  Serious: Yes (Life-Threatening, Hospitalization, Other)
  Sender: FDA-Public Use
  Company Number: DE-ABBOTT-13P-062-1040808-00

PATIENT
  Age: 28 Year
  Sex: Male
  Weight: 60 kg

DRUGS (2)
  1. HUMIRA PEN [Suspect]
     Indication: COLITIS ULCERATIVE
     Dosage: TOTAL DOSE 160 MG
     Route: 058
     Dates: start: 20121215, end: 20121215
  2. HUMIRA PEN [Suspect]
     Dosage: 80 MG TOTAL DOSE
     Route: 058
     Dates: start: 20121229, end: 20121229

REACTIONS (6)
  - Antineutrophil cytoplasmic antibody positive [Recovering/Resolving]
  - Enterocolitis [Recovering/Resolving]
  - Protein-losing gastroenteropathy [Recovering/Resolving]
  - Dehydration [Recovering/Resolving]
  - Enteritis [Recovering/Resolving]
  - Dehydration [Recovering/Resolving]
